FAERS Safety Report 4781284-7 (Version None)
Quarter: 2005Q3

REPORT INFORMATION
  Report Type: 
  Country: None (occurrence: None)
  Receive Date: 20050914
  Receipt Date: 20050411
  Transmission Date: 20060218
  Serious: Yes (Hospitalization)
  Sender: FDA-Public Use
  Company Number: 163-20785-05040266

PATIENT
  Age: 46 Year
  Sex: Female

DRUGS (3)
  1. THALOMID [Suspect]
     Indication: MULTIPLE MYELOMA
     Dosage: 200 MG, AT BEDTIME, ORAL; 100 MG, AT BEDTIME, ORAL
     Route: 048
     Dates: start: 20040928, end: 20040101
  2. THALOMID [Suspect]
     Indication: MULTIPLE MYELOMA
     Dosage: 200 MG, AT BEDTIME, ORAL; 100 MG, AT BEDTIME, ORAL
     Route: 048
     Dates: start: 20040315, end: 20040323
  3. THALOMID [Suspect]
     Indication: MULTIPLE MYELOMA
     Dosage: 200 MG, AT BEDTIME, ORAL; 100 MG, AT BEDTIME, ORAL
     Route: 048
     Dates: start: 20040902, end: 20040901

REACTIONS (1)
  - DEEP VEIN THROMBOSIS [None]
